FAERS Safety Report 19037528 (Version 1)
Quarter: 2021Q1

REPORT INFORMATION
  Report Type: Report from Study
  Country: RO (occurrence: RO)
  Receive Date: 20210322
  Receipt Date: 20210322
  Transmission Date: 20210420
  Serious: Yes (Other)
  Sender: FDA-Public Use
  Company Number: RO-GILEAD-2021-0521380

PATIENT
  Age: 66 Year
  Sex: Male

DRUGS (4)
  1. LEDIPASVIR/SOFOSBUVIR [Suspect]
     Active Substance: LEDIPASVIR\SOFOSBUVIR
     Indication: HEPATIC CIRRHOSIS
  2. LEDIPASVIR/SOFOSBUVIR [Suspect]
     Active Substance: LEDIPASVIR\SOFOSBUVIR
     Indication: HEPATITIS C
     Dosage: 1 DOSAGE FORM, QD
     Route: 048
     Dates: start: 20210129
  3. ARLEVERT [Concomitant]
     Active Substance: CINNARIZINE\DIMENHYDRINATE
     Indication: CARDIOVASCULAR DISORDER
     Dosage: 1 DOSAGE FORM, QD
     Route: 048
     Dates: start: 2014
  4. PRAMISTAR [Concomitant]
     Active Substance: PRAMIRACETAM SULFATE
     Indication: CARDIOVASCULAR DISORDER
     Dosage: 1 DOSAGE FORM, QD
     Route: 048
     Dates: start: 2014

REACTIONS (5)
  - Penile haemorrhage [Unknown]
  - Eye pain [Not Recovered/Not Resolved]
  - Penile rash [Unknown]
  - Penile discomfort [Recovered/Resolved]
  - Hypersensitivity [Not Recovered/Not Resolved]

NARRATIVE: CASE EVENT DATE: 202103
